FAERS Safety Report 10009322 (Version 1)
Quarter: 2014Q1

REPORT INFORMATION
  Report Type: Spontaneous
  Country: IN (occurrence: IN)
  Receive Date: 20140313
  Receipt Date: 20140313
  Transmission Date: 20141002
  Serious: Yes (Other)
  Sender: FDA-Public Use
  Company Number: CHPA2014IN003592

PATIENT
  Age: 26 Year
  Sex: Male

DRUGS (2)
  1. OTRIVIN [Suspect]
     Dosage: UNK DF, 5 TO 10 TIMES A DAY
     Route: 045
  2. OTRIVIN [Suspect]
     Dosage: UNK, SEVERAL TIMES DURING THE NIGHT
     Route: 045

REACTIONS (6)
  - Drug dependence [Unknown]
  - Nasal septum deviation [Unknown]
  - Sinusitis [Unknown]
  - Polyp [Unknown]
  - Rhinitis [Unknown]
  - Inappropriate schedule of drug administration [Unknown]
